FAERS Safety Report 5788828-7 (Version None)
Quarter: 2008Q2

REPORT INFORMATION
  Report Type: 
  Country: None (occurrence: None)
  Receive Date: 20080626
  Receipt Date: 20080613
  Transmission Date: 20081010
  Serious: Yes (Hospitalization)
  Sender: FDA-Public Use
  Company Number: US-AMGEN-US282685

PATIENT
  Sex: Male

DRUGS (1)
  1. PANITUMUMAB [Suspect]
     Indication: COLORECTAL CANCER
     Route: 042
     Dates: start: 20080428, end: 20080513

REACTIONS (8)
  - ASTHENIA [None]
  - CHEILITIS [None]
  - DIARRHOEA [None]
  - GLOSSITIS [None]
  - PLATELET COUNT DECREASED [None]
  - RALES [None]
  - STOMATITIS [None]
  - WHITE BLOOD CELL COUNT DECREASED [None]
